FAERS Safety Report 13463100 (Version 1)
Quarter: 2017Q2

REPORT INFORMATION
  Report Type: Spontaneous
  Country: FR (occurrence: FR)
  Receive Date: 20170420
  Receipt Date: 20170420
  Transmission Date: 20170830
  Serious: Yes (Life-Threatening, Hospitalization, Disabling)
  Sender: FDA-Public Use
  Company Number: FR-PFIZER INC-2017164972

PATIENT
  Age: 67 Year
  Sex: Male

DRUGS (11)
  1. VINCRISTINE HOSPIRA [Suspect]
     Active Substance: VINCRISTINE
     Indication: NON-HODGKIN^S LYMPHOMA STAGE IV
     Dosage: 2.8 MG, DAILY
     Route: 042
     Dates: start: 20160425, end: 20160809
  2. ENDOXAN /00021101/ [Suspect]
     Active Substance: CYCLOPHOSPHAMIDE
     Indication: NON-HODGKIN^S LYMPHOMA STAGE IV
     Dosage: 1500 MG, DAILY
     Route: 042
     Dates: start: 20160425, end: 20160809
  3. CORTANCYL [Suspect]
     Active Substance: PREDNISONE
     Indication: NON-HODGKIN^S LYMPHOMA STAGE IV
     Dosage: 80 MG, DAILY
     Route: 048
     Dates: start: 20160425, end: 20160809
  4. METHYLPREDNISOLONE MYLAN /00049602/ [Concomitant]
     Active Substance: METHYLPREDNISOLONE SODIUM SUCCINATE
     Route: 042
  5. POLARAMINE [Concomitant]
     Active Substance: DEXCHLORPHENIRAMINE MALEATE
     Route: 042
  6. MABTHERA [Suspect]
     Active Substance: RITUXIMAB
     Indication: NON-HODGKIN^S LYMPHOMA STAGE IV
     Dosage: 1400 MG, 1X/DAY
     Route: 042
     Dates: start: 20160425
  7. ONDANSETRON ACCORD [Concomitant]
     Active Substance: ONDANSETRON
     Route: 042
  8. DOXORUBICINE TEVA [Suspect]
     Active Substance: DOXORUBICIN
     Indication: NON-HODGKIN^S LYMPHOMA STAGE IV
     Dosage: 100 MG, DAILY
     Route: 042
     Dates: start: 20160425, end: 20160809
  9. DOLIPRANE [Concomitant]
     Active Substance: ACETAMINOPHEN
  10. UROMITEXAN [Concomitant]
     Active Substance: MESNA
     Route: 048
  11. MESNA EG [Concomitant]
     Active Substance: MESNA
     Route: 042

REACTIONS (5)
  - Cardiac failure [Recovering/Resolving]
  - Mitral valve incompetence [Recovering/Resolving]
  - Ejection fraction decreased [Recovering/Resolving]
  - Tachyarrhythmia [Recovered/Resolved]
  - Pulmonary hypertension [Recovering/Resolving]

NARRATIVE: CASE EVENT DATE: 20161122
